FAERS Safety Report 19908442 (Version 2)
Quarter: 2022Q1

REPORT INFORMATION
  Report Type: Spontaneous
  Country: FR (occurrence: FR)
  Receive Date: 20211001
  Receipt Date: 20220217
  Transmission Date: 20220423
  Serious: Yes (Hospitalization, Disabling, Other)
  Sender: FDA-Public Use
  Company Number: FR-BAYER-2019-184006

PATIENT
  Age: 42 Year
  Sex: Female

DRUGS (8)
  1. ETHINYL ESTRADIOL\LEVONORGESTREL [Suspect]
     Active Substance: ETHINYL ESTRADIOL\LEVONORGESTREL
     Dosage: UNK
  2. ESTRADIOL [Suspect]
     Active Substance: ESTRADIOL
     Dosage: UNK
     Route: 048
     Dates: start: 1999, end: 2005
  3. ESTRADIOL [Suspect]
     Active Substance: ESTRADIOL
     Dosage: UNK
     Route: 048
     Dates: start: 1994, end: 1998
  4. ESTRADIOL [Suspect]
     Active Substance: ESTRADIOL
     Dosage: UNK
     Dates: start: 2007, end: 2012
  5. CYPROTERONE ACETATE [Suspect]
     Active Substance: CYPROTERONE ACETATE
     Indication: Contraception
     Dosage: 25 MG, 1X/DAY
     Route: 048
     Dates: start: 200702, end: 201205
  6. CYPROTERONE ACETATE [Suspect]
     Active Substance: CYPROTERONE ACETATE
     Indication: Acne
     Dosage: 25 MG, 1X/DAY
     Route: 048
     Dates: start: 1999, end: 2005
  7. CYPROTERONE ACETATE [Suspect]
     Active Substance: CYPROTERONE ACETATE
     Dosage: 25 MG, 1X/DAY
     Route: 048
     Dates: start: 199412, end: 199712
  8. DIANE (CYPROTERONE ACETATE\ETHINYL ESTRADIOL) [Suspect]
     Active Substance: CYPROTERONE ACETATE\ETHINYL ESTRADIOL
     Indication: Acne
     Route: 048
     Dates: start: 199403, end: 1994

REACTIONS (34)
  - Amnesia [Unknown]
  - Fatigue [Unknown]
  - Meningioma [Unknown]
  - Behaviour disorder [Unknown]
  - Disturbance in attention [Unknown]
  - Agnosia [Unknown]
  - Anxiety [Unknown]
  - Clinomania [Unknown]
  - Blindness [Unknown]
  - Ageusia [Unknown]
  - Epilepsy [Unknown]
  - Pollakiuria [Unknown]
  - Anosmia [Unknown]
  - Migraine [Unknown]
  - Mood altered [Unknown]
  - Balance disorder [Unknown]
  - Loss of consciousness [Unknown]
  - Cognitive disorder [Unknown]
  - Aggression [Unknown]
  - Memory impairment [Unknown]
  - Visual impairment [Unknown]
  - Depression [Unknown]
  - Asthenia [Unknown]
  - Nausea [Unknown]
  - Migraine without aura [Unknown]
  - Weight increased [Unknown]
  - Road traffic accident [Unknown]
  - Amenorrhoea [Unknown]
  - Head deformity [Unknown]
  - Wound complication [Unknown]
  - Headache [Unknown]
  - Vomiting [Unknown]
  - Fibroadenoma of breast [Unknown]
  - Procedural pain [Unknown]

NARRATIVE: CASE EVENT DATE: 19940301
